FAERS Safety Report 10059233 (Version 1)
Quarter: 2014Q2

REPORT INFORMATION
  Report Type: Spontaneous
  Country: US (occurrence: US)
  Receive Date: 20140404
  Receipt Date: 20140404
  Transmission Date: 20141212
  Serious: No
  Sender: FDA-Public Use
  Company Number: US-BAYER-2014-050409

PATIENT
  Age: 2 Year
  Sex: Male
  Weight: 19.05 kg

DRUGS (1)
  1. ALEVE CAPLET [Suspect]
     Dosage: 2 OR 3 DF, ONCE
     Route: 048
     Dates: start: 20140401, end: 20140401

REACTIONS (2)
  - Accidental exposure to product by child [None]
  - Failure of child resistant mechanism for pharmaceutical product [None]
